FAERS Safety Report 9746619 (Version 2)
Quarter: 2013Q4

REPORT INFORMATION
  Report Type: Spontaneous
  Country: DE (occurrence: DE)
  Receive Date: 20131211
  Receipt Date: 20131231
  Transmission Date: 20140711
  Serious: Yes (Other)
  Sender: FDA-Public Use
  Company Number: DE-ABBVIE-13P-062-1175856-00

PATIENT
  Age: 33 Year
  Sex: Female

DRUGS (3)
  1. HUMIRA [Suspect]
     Indication: COLITIS ULCERATIVE
     Route: 058
     Dates: start: 20131016, end: 20131119
  2. CLAVERSAL [Concomitant]
     Indication: PRODUCT USED FOR UNKNOWN INDICATION
  3. AZATHIOPRIN [Concomitant]
     Indication: PRODUCT USED FOR UNKNOWN INDICATION

REACTIONS (4)
  - Loss of consciousness [Recovered/Resolved]
  - Blood test abnormal [Recovered/Resolved]
  - Pyrexia [Recovered/Resolved]
  - Syncope [Unknown]
